FAERS Safety Report 7413383-5 (Version None)
Quarter: 2011Q2

REPORT INFORMATION
  Report Type: 
  Country: None (occurrence: None)
  Receive Date: 20110413
  Receipt Date: 20110126
  Transmission Date: 20111010
  Serious: No
  Sender: FDA-Public Use
  Company Number: US-B.I. PHARMACEUTICALS,INC./RIDGEFIELD-2011-BP-02688BP

PATIENT
  Age: 77 Year
  Sex: Female

DRUGS (9)
  1. ASPIRIN [Concomitant]
     Dosage: 81 MG
  2. AMLODIPINE [Concomitant]
     Dosage: 10 MG
  3. LEXAPRO [Concomitant]
     Dosage: 10 MG
  4. PRADAXA [Suspect]
     Indication: ATRIAL FIBRILLATION
     Dosage: 300 MG
     Route: 048
     Dates: start: 20110105
  5. TICOCINI [Concomitant]
     Dosage: 500 MG
  6. CHLORESTECTOMINE [Concomitant]
     Dosage: 8 G
  7. BENECAR [Concomitant]
     Dosage: 40 MG
  8. LASIX [Concomitant]
     Dosage: 20 MG
  9. LOW NIACIN [Concomitant]

REACTIONS (2)
  - CHEST DISCOMFORT [None]
  - FAECES DISCOLOURED [None]
